FAERS Safety Report 11379078 (Version 1)
Quarter: 2015Q3

REPORT INFORMATION
  Report Type: Spontaneous
  Country: US (occurrence: US)
  Receive Date: 20150811
  Receipt Date: 20150811
  Transmission Date: 20151125
  Serious: No
  Sender: FDA-Public Use
  Company Number: US-ELI_LILLY_AND_COMPANY-US200812003150

PATIENT
  Age: 51 Year
  Sex: Male

DRUGS (3)
  1. NEBIVOLOL. [Interacting]
     Active Substance: NEBIVOLOL
     Dosage: UNK, UNKNOWN
     Route: 065
  2. CIALIS [Suspect]
     Active Substance: TADALAFIL
     Dosage: UNK, UNKNOWN
     Route: 065
  3. VIAGRA [Interacting]
     Active Substance: SILDENAFIL CITRATE
     Dosage: UNK, UNKNOWN
     Route: 065

REACTIONS (2)
  - Erectile dysfunction [Unknown]
  - Drug interaction [Unknown]
